FAERS Safety Report 8835139 (Version 2)
Quarter: 2012Q4

REPORT INFORMATION
  Report Type: 
  Country: US (occurrence: US)
  Receive Date: 20121011
  Receipt Date: 20121101
  Transmission Date: 20130627
  Serious: Yes (Hospitalization, Other)
  Sender: FDA-Public Use
  Company Number: US-BAYER-2012-103892

PATIENT
  Age: 48 Year
  Sex: Female

DRUGS (5)
  1. BETASERON [Suspect]
     Indication: RELAPSING-REMITTING MULTIPLE SCLEROSIS
     Dosage: UNK
     Dates: start: 2001, end: 2004
  2. VITAMIN D [Concomitant]
     Dosage: 50000 u, BID
  3. ACE INHIBITOR NOS [Concomitant]
     Indication: HYPERTENSION
     Dosage: UNK
  4. INSULIN [Concomitant]
     Dosage: UNK
  5. THYROID SUPPLEMENT [Concomitant]
     Dosage: UNK

REACTIONS (7)
  - Multiple sclerosis relapse [None]
  - Blood glucose increased [None]
  - Syncope [None]
  - Loss of consciousness [None]
  - Blood glucose increased [None]
  - Dizziness [None]
  - Thirst [None]
